FAERS Safety Report 9122623 (Version 1)
Quarter: 2013Q1

REPORT INFORMATION
  Report Type: Spontaneous
  Country: CA (occurrence: CA)
  Receive Date: 20130227
  Receipt Date: 20130227
  Transmission Date: 20140127
  Serious: Yes (Life-Threatening, Hospitalization, Other)
  Sender: FDA-Public Use
  Company Number: CA-BRISTOL-MYERS SQUIBB COMPANY-17409418

PATIENT
  Age: 56 Year
  Sex: Female
  Weight: 46.71 kg

DRUGS (3)
  1. ESTRACE [Suspect]
     Dosage: TAB
     Route: 048
  2. MEDROXYPROGESTERONE [Suspect]
     Dosage: TAB
     Route: 048
  3. PREMARIN [Concomitant]

REACTIONS (1)
  - Breast cancer [Unknown]
